FAERS Safety Report 4509949-2 (Version None)
Quarter: 2004Q4

REPORT INFORMATION
  Report Type: 
  Country: None (occurrence: None)
  Receive Date: 20041119
  Receipt Date: 20041108
  Transmission Date: 20050328
  Serious: Yes (Other)
  Sender: FDA-Public Use
  Company Number: 194423

PATIENT
  Age: 58 Year
  Sex: Female
  Weight: 56.6996 kg

DRUGS (14)
  1. AVONEX [Suspect]
     Indication: MULTIPLE SCLEROSIS
     Dosage: 30 MCG QW IM
     Route: 030
     Dates: start: 20000101, end: 20030801
  2. AVONEX [Suspect]
     Indication: MULTIPLE SCLEROSIS
     Dosage: 30 MCG QW IM
     Route: 030
     Dates: start: 20030801
  3. AVONEX [Suspect]
     Indication: MULTIPLE SCLEROSIS
     Dosage: 30 MCG QW IM
     Route: 030
  4. DANTRIUM [Concomitant]
  5. CEFADROXIL [Concomitant]
  6. FOSAMAX [Concomitant]
  7. LIPITOR [Concomitant]
  8. ULTRAM [Concomitant]
  9. LIORESAL ^NOVARTIS^ [Concomitant]
  10. ALEVE [Concomitant]
  11. VITAMIN B COMPLEX CAP [Concomitant]
  12. VITAMIN C [Concomitant]
  13. CALTRATE [Concomitant]
  14. THERA-M [Concomitant]

REACTIONS (16)
  - ANISOCYTOSIS [None]
  - ASPARTATE AMINOTRANSFERASE INCREASED [None]
  - BLADDER CANCER [None]
  - BLOOD ERYTHROPOIETIN INCREASED [None]
  - BLOOD IMMUNOGLOBULIN A DECREASED [None]
  - HYPOGAMMAGLOBULINAEMIA [None]
  - IMMUNOGLOBULINS DECREASED [None]
  - INCREASED TENDENCY TO BRUISE [None]
  - LABORATORY TEST INTERFERENCE [None]
  - LIGHT CHAIN DISEASE [None]
  - MACROCYTOSIS [None]
  - MARROW HYPERPLASIA [None]
  - MYELODYSPLASTIC SYNDROME [None]
  - PANCYTOPENIA [None]
  - POIKILOCYTOSIS [None]
  - PROTEIN TOTAL DECREASED [None]
